FAERS Safety Report 10201026 (Version 2)
Quarter: 2014Q2

REPORT INFORMATION
  Report Type: Report from Study
  Country: CA (occurrence: CA)
  Receive Date: 20140528
  Receipt Date: 20140625
  Transmission Date: 20141212
  Serious: Yes (Other)
  Sender: FDA-Public Use
  Company Number: PHHY2014CA064720

PATIENT
  Age: 48 Year
  Sex: Female

DRUGS (1)
  1. SANDOSTATIN LAR [Suspect]
     Indication: PANCREATIC FISTULA
     Dosage: 20 MG, EVERY 4 WEEKS
     Route: 030
     Dates: start: 20140425

REACTIONS (9)
  - Blood pressure decreased [Unknown]
  - Injection site discharge [Recovered/Resolved]
  - Injection site haemorrhage [Recovered/Resolved]
  - Gastrointestinal disorder [Unknown]
  - Catheter site haemorrhage [Unknown]
  - Dizziness [Unknown]
  - Hypoglycaemia [Unknown]
  - Hyperglycaemia [Unknown]
  - Blood glucose fluctuation [Unknown]
